FAERS Safety Report 19956312 (Version 1)
Quarter: 2021Q4

REPORT INFORMATION
  Report Type: Report from Study
  Country: US (occurrence: US)
  Receive Date: 20211014
  Receipt Date: 20211014
  Transmission Date: 20220303
  Serious: Yes (Other)
  Sender: FDA-Public Use
  Company Number: US-JNJFOC-20211015147

PATIENT

DRUGS (24)
  1. REMICADE [Suspect]
     Active Substance: INFLIXIMAB
     Indication: Crohn^s disease
     Route: 042
  2. REMICADE [Suspect]
     Active Substance: INFLIXIMAB
     Indication: Psoriasis
  3. REMICADE [Suspect]
     Active Substance: INFLIXIMAB
     Indication: Psoriatic arthropathy
  4. REMICADE [Suspect]
     Active Substance: INFLIXIMAB
     Indication: Dermatitis psoriasiform
  5. REMICADE [Suspect]
     Active Substance: INFLIXIMAB
     Indication: Dermatitis psoriasiform
  6. REMICADE [Suspect]
     Active Substance: INFLIXIMAB
     Indication: Eczema
  7. REMICADE [Suspect]
     Active Substance: INFLIXIMAB
     Indication: Eczema
  8. REMICADE [Suspect]
     Active Substance: INFLIXIMAB
     Indication: Dermatitis atopic
  9. REMICADE [Suspect]
     Active Substance: INFLIXIMAB
     Indication: Alopecia
  10. REMICADE [Suspect]
     Active Substance: INFLIXIMAB
     Indication: Pyoderma gangrenosum
  11. REMICADE [Suspect]
     Active Substance: INFLIXIMAB
     Indication: Erythema nodosum
  12. REMICADE [Suspect]
     Active Substance: INFLIXIMAB
     Indication: Cutaneous vasculitis
  13. SIMPONI [Suspect]
     Active Substance: GOLIMUMAB
     Indication: Crohn^s disease
     Route: 058
  14. SIMPONI [Suspect]
     Active Substance: GOLIMUMAB
     Indication: Psoriasis
  15. SIMPONI [Suspect]
     Active Substance: GOLIMUMAB
     Indication: Psoriatic arthropathy
  16. SIMPONI [Suspect]
     Active Substance: GOLIMUMAB
     Indication: Dermatitis psoriasiform
  17. SIMPONI [Suspect]
     Active Substance: GOLIMUMAB
     Indication: Dermatitis psoriasiform
  18. SIMPONI [Suspect]
     Active Substance: GOLIMUMAB
     Indication: Eczema
  19. SIMPONI [Suspect]
     Active Substance: GOLIMUMAB
     Indication: Eczema
  20. SIMPONI [Suspect]
     Active Substance: GOLIMUMAB
     Indication: Dermatitis atopic
  21. SIMPONI [Suspect]
     Active Substance: GOLIMUMAB
     Indication: Alopecia
  22. SIMPONI [Suspect]
     Active Substance: GOLIMUMAB
     Indication: Pyoderma gangrenosum
  23. SIMPONI [Suspect]
     Active Substance: GOLIMUMAB
     Indication: Erythema nodosum
  24. SIMPONI [Suspect]
     Active Substance: GOLIMUMAB
     Indication: Cutaneous vasculitis

REACTIONS (30)
  - Deep vein thrombosis [Unknown]
  - Pulmonary embolism [Unknown]
  - Neuropathy peripheral [Unknown]
  - Anaphylactic reaction [Unknown]
  - Demyelination [Unknown]
  - Sepsis [Unknown]
  - Pneumonia [Unknown]
  - Cardiac failure [Unknown]
  - Pancytopenia [Unknown]
  - Systemic lupus erythematosus [Unknown]
  - Visual impairment [Unknown]
  - Myositis [Unknown]
  - Arthropathy [Unknown]
  - Arthritis [Unknown]
  - Serum sickness [Unknown]
  - Eczema [Unknown]
  - Skin infection [Unknown]
  - Herpes zoster [Unknown]
  - Psoriasis [Unknown]
  - Fatigue [Unknown]
  - Headache [Unknown]
  - Rash [Unknown]
  - Myalgia [Unknown]
  - Abdominal pain [Unknown]
  - Dyspnoea [Unknown]
  - Hepatic enzyme increased [Unknown]
  - Injection site reaction [Unknown]
  - Urticaria [Unknown]
  - Therapeutic response decreased [Unknown]
  - Therapy non-responder [Unknown]
